FAERS Safety Report 24908024 (Version 6)
Quarter: 2025Q4

REPORT INFORMATION
  Report Type: Report from Study
  Country: JP (occurrence: JP)
  Receive Date: 20250131
  Receipt Date: 20251216
  Transmission Date: 20260118
  Serious: Yes (Hospitalization)
  Sender: ALEXION PHARMACEUTICALS
  Company Number: JP-ALXN-A202211785

PATIENT
  Age: 52 Year
  Sex: Female
  Weight: 35 kg

DRUGS (37)
  1. SOLIRIS [Suspect]
     Active Substance: ECULIZUMAB
     Indication: Neuromyelitis optica spectrum disorder
     Dosage: 900 MILLIGRAM, QW
     Dates: start: 20210824, end: 20210914
  2. SOLIRIS [Suspect]
     Active Substance: ECULIZUMAB
     Dosage: 1200 MILLIGRAM, Q2W
     Dates: start: 20210921, end: 20230821
  3. SOLIRIS [Suspect]
     Active Substance: ECULIZUMAB
     Dosage: 1200 MILLIGRAM, Q2W
     Dates: start: 20230911
  4. PREDONINE [Concomitant]
     Active Substance: PREDNISOLONE
     Indication: Neuromyelitis optica spectrum disorder
     Dosage: 40 MILLIGRAM, QD
     Route: 061
     Dates: start: 20200217, end: 20200221
  5. PREDONINE [Concomitant]
     Active Substance: PREDNISOLONE
     Dosage: 30 MILLIGRAM, QD
     Route: 061
     Dates: start: 20200225, end: 20200312
  6. PREDONINE [Concomitant]
     Active Substance: PREDNISOLONE
     Dosage: 25 MILLIGRAM, QD
     Route: 061
     Dates: start: 20200313, end: 20200326
  7. PREDONINE [Concomitant]
     Active Substance: PREDNISOLONE
     Dosage: 20 MILLIGRAM, QD
     Route: 061
     Dates: start: 20200327, end: 20200402
  8. PREDONINE [Concomitant]
     Active Substance: PREDNISOLONE
     Dosage: 15 MILLIGRAM, QD
     Route: 061
     Dates: start: 20200403
  9. PREDONINE [Concomitant]
     Active Substance: PREDNISOLONE
     Dosage: 7.5 MILLIGRAM, QD
     Route: 061
     Dates: end: 20220308
  10. PREDONINE [Concomitant]
     Active Substance: PREDNISOLONE
     Dosage: 6 MILLIGRAM, QD
     Route: 061
     Dates: start: 20220309, end: 20220919
  11. PREDONINE [Concomitant]
     Active Substance: PREDNISOLONE
     Dosage: 5 MILLIGRAM, QD
     Route: 061
     Dates: start: 20220920, end: 20241124
  12. PREDONINE [Concomitant]
     Active Substance: PREDNISOLONE
     Dosage: 4 MILLIGRAM, QD
     Route: 061
     Dates: start: 20241125, end: 20241222
  13. PREDONINE [Concomitant]
     Active Substance: PREDNISOLONE
     Dosage: 3 MILLIGRAM, QD
     Route: 061
     Dates: start: 20241223, end: 20250119
  14. PREDONINE [Concomitant]
     Active Substance: PREDNISOLONE
     Dosage: 2 MILLIGRAM, QD
     Route: 061
     Dates: start: 20250120, end: 20250216
  15. PREDONINE [Concomitant]
     Active Substance: PREDNISOLONE
     Dosage: 1 MILLIGRAM, QD
     Route: 061
     Dates: start: 20250217, end: 20250316
  16. PREDONINE [Concomitant]
     Active Substance: PREDNISOLONE
     Dosage: 3 MILLIGRAM, QD
     Route: 061
     Dates: start: 20250317, end: 20250604
  17. PLAQUENIL [Concomitant]
     Active Substance: HYDROXYCHLOROQUINE SULFATE
     Indication: Systemic lupus erythematosus
     Dosage: 200 MILLIGRAM, QD
     Route: 061
  18. CELLCEPT [Concomitant]
     Active Substance: MYCOPHENOLATE MOFETIL
     Indication: Lupus nephritis
     Dosage: 250 MILLIGRAM, BID
     Route: 061
     Dates: end: 20211019
  19. ERYTHROCIN [Concomitant]
     Active Substance: ERYTHROMYCIN LACTOBIONATE
     Indication: Atypical mycobacterial infection
     Dosage: 100 MILLIGRAM, BID
     Route: 061
     Dates: start: 2017
  20. DENOSUMAB [Concomitant]
     Active Substance: DENOSUMAB
     Indication: Osteoporosis
     Dosage: 60 MILLIGRAM, EVERY 6 MONTHS
  21. CALCIUM CARBONATE\CHOLECALCIFEROL\MAGNESIUM CARBONATE [Concomitant]
     Active Substance: CALCIUM CARBONATE\CHOLECALCIFEROL\MAGNESIUM CARBONATE
     Indication: Osteoporosis
     Dosage: 2 DOSAGE FORM, QD
     Route: 061
  22. VESICARE [Concomitant]
     Active Substance: SOLIFENACIN SUCCINATE
     Indication: Hypertonic bladder
     Dosage: 5 MILLIGRAM, QD
     Route: 061
     Dates: end: 20250703
  23. MIRABEGRON [Concomitant]
     Active Substance: MIRABEGRON
     Indication: Hypertonic bladder
     Dosage: 50 MILLIGRAM, QD
     Route: 061
  24. MIROGABALIN BESYLATE [Concomitant]
     Active Substance: MIROGABALIN BESYLATE
     Indication: Neuropathy peripheral
     Dosage: 5 MILLIGRAM, BID
     Route: 061
     Dates: end: 20230702
  25. MIROGABALIN BESYLATE [Concomitant]
     Active Substance: MIROGABALIN BESYLATE
     Indication: Herpes zoster
     Dosage: 10 MILLIGRAM, BID
     Route: 061
     Dates: start: 20230703, end: 20230806
  26. MIROGABALIN BESYLATE [Concomitant]
     Active Substance: MIROGABALIN BESYLATE
     Indication: Post herpetic neuralgia
     Dosage: 5 MILLIGRAM, BID
     Route: 061
     Dates: start: 20230807, end: 20230904
  27. MIROGABALIN BESYLATE [Concomitant]
     Active Substance: MIROGABALIN BESYLATE
     Indication: Nausea
     Dosage: 10 MILLIGRAM, BID
     Route: 061
     Dates: start: 20230905, end: 20231105
  28. MIROGABALIN BESYLATE [Concomitant]
     Active Substance: MIROGABALIN BESYLATE
     Indication: Decreased appetite
     Dosage: 15 MILLIGRAM, BID (5 MILLIGRAM IN MORNING AND 10 MILLIGRAM IN EVENING)
     Route: 061
     Dates: start: 20231106
  29. METHYLCOBALAMIN [Concomitant]
     Active Substance: METHYLCOBALAMIN
     Indication: Neuropathy peripheral
     Dosage: 0.5 MILLIGRAM, TID
     Route: 061
     Dates: start: 20200305
  30. LACTULOSE [Concomitant]
     Active Substance: LACTULOSE
     Indication: Systemic lupus erythematosus
     Dosage: 1 PACK, BID
     Route: 061
     Dates: end: 20230402
  31. HEMOPORISON [Concomitant]
     Indication: Haemorrhoids
     Dosage: 2 GRAM, QD
  32. GLYCERIN [Concomitant]
     Active Substance: GLYCERIN
     Indication: Systemic lupus erythematosus
     Dosage: 60 MILLILITER, PRN
  33. NEXIUM [Concomitant]
     Active Substance: ESOMEPRAZOLE MAGNESIUM
     Indication: Prophylaxis
     Dosage: 20 MILLIGRAM, QD
     Route: 061
     Dates: start: 20200306
  34. ACETAMINOPHEN\TRAMADOL HYDROCHLORIDE [Concomitant]
     Active Substance: ACETAMINOPHEN\TRAMADOL HYDROCHLORIDE
     Indication: Systemic lupus erythematosus
     Dosage: 1 DOSAGE FORM, DURING PAIN
     Route: 061
     Dates: start: 20210726, end: 20210914
  35. ACETAMINOPHEN\TRAMADOL HYDROCHLORIDE [Concomitant]
     Active Substance: ACETAMINOPHEN\TRAMADOL HYDROCHLORIDE
     Indication: Sjogren^s syndrome
     Dosage: 1 DOSAGE FORM, BID
     Route: 061
     Dates: start: 20230629, end: 20230925
  36. ACETAMINOPHEN\TRAMADOL HYDROCHLORIDE [Concomitant]
     Active Substance: ACETAMINOPHEN\TRAMADOL HYDROCHLORIDE
     Indication: Herpes zoster
     Dosage: 1 DOSAGE FORM, QD
     Route: 061
     Dates: start: 20230926
  37. BENLYSTA [Concomitant]
     Active Substance: BELIMUMAB
     Indication: Systemic lupus erythematosus
     Dosage: 200 MILLIGRAM, QW
     Dates: start: 20210310, end: 20210824

REACTIONS (15)
  - Muscle spasms [Recovered/Resolved]
  - Myalgia [Recovering/Resolving]
  - Herpes zoster [Recovering/Resolving]
  - Pyrexia [Recovering/Resolving]
  - Post herpetic neuralgia [Recovering/Resolving]
  - Nausea [Recovering/Resolving]
  - Decreased appetite [Recovering/Resolving]
  - Hypotension [Recovered/Resolved]
  - Pyrexia [Recovering/Resolving]
  - Hypophagia [Recovering/Resolving]
  - Dehydration [Recovering/Resolving]
  - Hypoglycaemia [Recovered/Resolved]
  - Rib fracture [Recovered/Resolved]
  - Decubitus ulcer [Recovered/Resolved]
  - Constipation [Recovered/Resolved]

NARRATIVE: CASE EVENT DATE: 20210901
